FAERS Safety Report 22051558 (Version 2)
Quarter: 2023Q4

REPORT INFORMATION
  Report Type: Report from Study
  Country: US (occurrence: US)
  Receive Date: 20230301
  Receipt Date: 20231025
  Transmission Date: 20240109
  Serious: Yes (Hospitalization, Other)
  Sender: FDA-Public Use
  Company Number: US-ABBVIE-4321358

PATIENT
  Sex: Male

DRUGS (2)
  1. IMBRUVICA [Suspect]
     Active Substance: IBRUTINIB
     Indication: Product used for unknown indication
     Route: 048
  2. IMBRUVICA [Suspect]
     Active Substance: IBRUTINIB
     Indication: Product used for unknown indication
     Route: 048

REACTIONS (3)
  - Nephrolithiasis [Unknown]
  - Cholelithiasis [Unknown]
  - Urostomy [Unknown]

NARRATIVE: CASE EVENT DATE: 20190101
